FAERS Safety Report 12062148 (Version 2)
Quarter: 2016Q1

REPORT INFORMATION
  Report Type: Spontaneous
  Country: GB (occurrence: GB)
  Receive Date: 20160210
  Receipt Date: 20160330
  Transmission Date: 20160526
  Serious: Yes (Other)
  Sender: FDA-Public Use
  Company Number: GB-PFIZER INC-2016066241

PATIENT
  Age: 17 Year
  Sex: Female
  Weight: 70 kg

DRUGS (5)
  1. LEVOTHYROXINE. [Concomitant]
     Active Substance: LEVOTHYROXINE
  2. CETHROMYCIN [Concomitant]
  3. GABAPENTIN. [Suspect]
     Active Substance: GABAPENTIN
     Dosage: 2 DF, 1X/DAY (TO BE INCREASED TO 3)
     Route: 048
     Dates: end: 20160122
  4. PENICILLIN [Concomitant]
     Active Substance: PENICILLIN
     Dosage: UNK
  5. GABAPENTIN. [Suspect]
     Active Substance: GABAPENTIN
     Indication: MIGRAINE
     Dosage: 1 DF, 1X/DAY
     Route: 048
     Dates: start: 20160101

REACTIONS (23)
  - Viral infection [Not Recovered/Not Resolved]
  - Vomiting [Not Recovered/Not Resolved]
  - Chromaturia [Not Recovered/Not Resolved]
  - Yellow skin [Not Recovered/Not Resolved]
  - Off label use [Unknown]
  - Dry mouth [Not Recovered/Not Resolved]
  - Insomnia [Unknown]
  - Rash [Recovered/Resolved]
  - Scleral discolouration [Not Recovered/Not Resolved]
  - Pain in extremity [Not Recovered/Not Resolved]
  - Nausea [Not Recovered/Not Resolved]
  - Pain [Not Recovered/Not Resolved]
  - Blood bilirubin increased [Not Recovered/Not Resolved]
  - Feeling abnormal [Unknown]
  - Pruritus [Not Recovered/Not Resolved]
  - Paraesthesia [Not Recovered/Not Resolved]
  - Shock [Unknown]
  - Impaired work ability [Unknown]
  - Abdominal pain [Unknown]
  - Crying [Unknown]
  - Influenza like illness [Not Recovered/Not Resolved]
  - Circulatory collapse [Unknown]
  - Depression [Unknown]

NARRATIVE: CASE EVENT DATE: 20160110
